FAERS Safety Report 7072586-2 (Version None)
Quarter: 2010Q4

REPORT INFORMATION
  Report Type: 
  Country: None (occurrence: None)
  Receive Date: 20101029
  Receipt Date: 20100216
  Transmission Date: 20110411
  Serious: No
  Sender: FDA-Public Use
  Company Number: A0844723A

PATIENT
  Age: 61 Year
  Sex: Female

DRUGS (6)
  1. ADVAIR DISKUS 100/50 [Suspect]
     Indication: ASTHMA
     Route: 055
     Dates: start: 20100212, end: 20100214
  2. ZANTAC [Concomitant]
  3. HYDROCODONE [Concomitant]
  4. LISINOPRIL [Concomitant]
  5. HYDROCHLOROTHIAZIDE [Concomitant]
  6. XANAX [Concomitant]

REACTIONS (2)
  - NERVOUSNESS [None]
  - TREMOR [None]
